FAERS Safety Report 8908994 (Version 1)
Quarter: 2012Q4

REPORT INFORMATION
  Report Type: 
  Country: US (occurrence: US)
  Receive Date: 20121113
  Receipt Date: 20121113
  Transmission Date: 20130627
  Serious: No
  Sender: FDA-Public Use
  Company Number: US-AMGEN-USASP2012011669

PATIENT
  Sex: Female

DRUGS (9)
  1. ENBREL [Suspect]
     Indication: PRODUCT USED FOR UNKNOWN INDICATION
     Dosage: 50 mg, qwk
     Route: 058
  2. PANTOPRAZOLE [Concomitant]
     Dosage: 40 mg, UNK
  3. AZATHIOPRINE [Concomitant]
     Dosage: 50 mg, UNK
  4. FLUCONAZOLE [Concomitant]
     Dosage: 200 mg, UNK
  5. PREDNISONE [Concomitant]
     Dosage: 1 mg, UNK
  6. SULFAZINE [Concomitant]
     Dosage: 500 mg, UNK
  7. VITAMIN D /00107901/ [Concomitant]
     Dosage: 1000 IU, UNK
  8. HYDROCODONE W/HOMATROPINE [Concomitant]
  9. EVOXAC [Concomitant]
     Dosage: 30 mg, UNK

REACTIONS (1)
  - Drug ineffective [Unknown]
